FAERS Safety Report 6044017-2 (Version None)
Quarter: 2009Q1

REPORT INFORMATION
  Report Type: 
  Country: None (occurrence: None)
  Receive Date: 20090114
  Receipt Date: 20090114
  Transmission Date: 20090719
  Serious: No
  Sender: FDA-Public Use
  Company Number: None

PATIENT
  Age: 47 Year
  Sex: Female
  Weight: 56.6996 kg

DRUGS (1)
  1. NICOTINE TRANSDERMAL 21MG NCH 0810 [Suspect]
     Dosage: 1 PATCH 24 HOURS TRANSDERMAL
     Route: 062
     Dates: start: 20090106, end: 20090112

REACTIONS (2)
  - APPLICATION SITE REACTION [None]
  - MYALGIA [None]
